FAERS Safety Report 17013072 (Version 1)
Quarter: 2019Q4

REPORT INFORMATION
  Report Type: Spontaneous
  Country: US (occurrence: US)
  Receive Date: 20191001
  Receipt Date: 20191001
  Transmission Date: 20200122
  Serious: Yes (Hospitalization)
  Sender: FDA-Public Use
  Company Number: None

PATIENT
  Age: 68 Year
  Sex: Male

DRUGS (1)
  1. PEMBROLIZUMAB. [Suspect]
     Active Substance: PEMBROLIZUMAB
     Indication: HYPOPHYSITIS
     Route: 042
     Dates: start: 20190205, end: 20190702

REACTIONS (8)
  - Acute kidney injury [None]
  - Adrenal insufficiency [None]
  - Hyponatraemia [None]
  - Adrenocortical insufficiency acute [None]
  - Toxicity to various agents [None]
  - Disease progression [None]
  - Hypoglycaemia [None]
  - Hypotension [None]

NARRATIVE: CASE EVENT DATE: 20190724
